FAERS Safety Report 7099458-1 (Version None)
Quarter: 2010Q4

REPORT INFORMATION
  Report Type: 
  Country: None (occurrence: None)
  Receive Date: 20101112
  Receipt Date: 20101102
  Transmission Date: 20110411
  Serious: Yes (Death)
  Sender: FDA-Public Use
  Company Number: GXKR2010DK12260

PATIENT
  Sex: Female

DRUGS (4)
  1. MIRTAZAPINE [Suspect]
     Indication: DEPRESSION
     Dosage: 15 MG, QD
     Route: 048
     Dates: start: 20101002
  2. MIRTAZAPINE [Suspect]
     Indication: DEPRESSION
     Dosage: 15 MILLIGRAM(S)
     Route: 048
  3. HJERTEMAGNYL ^DAK^ [Concomitant]
     Indication: CEREBROVASCULAR ACCIDENT
     Route: 048
     Dates: end: 20101001
  4. PERSANTIN [Concomitant]
     Indication: CEREBROVASCULAR ACCIDENT
     Dosage: 200 MILLIGRAM(S)
     Route: 048

REACTIONS (5)
  - FATIGUE [None]
  - HAEMORRHAGE INTRACRANIAL [None]
  - LEUKOPENIA [None]
  - PANCYTOPENIA [None]
  - THROMBOCYTOPENIA [None]
